FAERS Safety Report 17265200 (Version 1)
Quarter: 2020Q1

REPORT INFORMATION
  Report Type: Report from Study
  Country: BR (occurrence: BR)
  Receive Date: 20200114
  Receipt Date: 20200114
  Transmission Date: 20200409
  Serious: Yes (Other)
  Sender: FDA-Public Use
  Company Number: BR-EMD SERONO-9137153

PATIENT
  Age: 43 Year
  Sex: Male

DRUGS (1)
  1. REBIF [Suspect]
     Active Substance: INTERFERON BETA-1A
     Indication: MULTIPLE SCLEROSIS
     Route: 058
     Dates: start: 20080915, end: 20190807

REACTIONS (6)
  - Back injury [Not Recovered/Not Resolved]
  - Weight increased [Not Recovered/Not Resolved]
  - Spinal disorder [Not Recovered/Not Resolved]
  - Spinal cord compression [Not Recovered/Not Resolved]
  - Fall [Unknown]
  - Gait inability [Not Recovered/Not Resolved]

NARRATIVE: CASE EVENT DATE: 20180928
